FAERS Safety Report 9764692 (Version 1)
Quarter: 2013Q4

REPORT INFORMATION
  Report Type: Spontaneous
  Country: US (occurrence: None)
  Receive Date: 20131213
  Receipt Date: 20131213
  Transmission Date: 20140711
  Serious: No
  Sender: FDA-Public Use
  Company Number: 2013SA024599

PATIENT
  Sex: Female

DRUGS (1)
  1. CAPSAICIN [Suspect]
     Indication: ARTHRITIS
     Dosage: ; UNKNOWN ; TOPICAL  ?
     Dates: start: 20081221

REACTIONS (4)
  - Thermal burn [None]
  - Pain [None]
  - Swelling [None]
  - Multiple injuries [None]
